FAERS Safety Report 6526825-4 (Version None)
Quarter: 2010Q1

REPORT INFORMATION
  Report Type: 
  Country: None (occurrence: None)
  Receive Date: 20100105
  Receipt Date: 20091222
  Transmission Date: 20100710
  Serious: No
  Sender: FDA-Public Use
  Company Number: US-B.I. PHARMACEUTICALS,INC./RIDGEFIELD-2009-BP-14725BP

PATIENT
  Sex: Male

DRUGS (3)
  1. FLOMAX [Suspect]
     Indication: PROSTATE CANCER
     Dosage: 0.4 MG
     Route: 048
     Dates: start: 20090601
  2. METOPROL [Concomitant]
     Indication: MYOCARDIAL INFARCTION
  3. ASPIRIN [Concomitant]
     Indication: MYOCARDIAL INFARCTION

REACTIONS (3)
  - EXERCISE TOLERANCE DECREASED [None]
  - MALAISE [None]
  - MUSCULAR WEAKNESS [None]
